FAERS Safety Report 5358276-2 (Version None)
Quarter: 2007Q2

REPORT INFORMATION
  Report Type: 
  Country: None (occurrence: None)
  Receive Date: 20070530
  Receipt Date: 20061127
  Transmission Date: 20071010
  Serious: Yes (Hospitalization)
  Sender: FDA-Public Use
  Company Number: US200603002324

PATIENT
  Sex: Male
  Weight: 76.6 kg

DRUGS (6)
  1. ZYPREXA [Suspect]
     Indication: BIPOLAR DISORDER
     Dosage: 10 MG
     Dates: start: 20000201, end: 20040701
  2. QUETIAPINE FUMARATE [Concomitant]
  3. RISPERIDONE [Concomitant]
  4. DEPAKOTE [Concomitant]
  5. LITHIUM CARBONATE [Concomitant]
  6. TRAZODONE HCL [Concomitant]

REACTIONS (3)
  - CONVULSION [None]
  - DIABETES MELLITUS [None]
  - HYPERGLYCAEMIA [None]
